FAERS Safety Report 12126583 (Version 3)
Quarter: 2016Q2

REPORT INFORMATION
  Report Type: Spontaneous
  Country: US (occurrence: US)
  Receive Date: 20160229
  Receipt Date: 20160421
  Transmission Date: 20160815
  Serious: Yes (Hospitalization, Other)
  Sender: FDA-Public Use
  Company Number: US-PFIZER INC-2016117883

PATIENT
  Age: 82 Year
  Sex: Male
  Weight: 83.9 kg

DRUGS (27)
  1. OMEPRAZOLE. [Concomitant]
     Active Substance: OMEPRAZOLE
     Dosage: 10 MG, 3X/DAY
  2. TIOTROPIUM BROMIDE [Concomitant]
     Active Substance: TIOTROPIUM BROMIDE
     Dosage: UNK
     Route: 055
  3. REVATIO [Suspect]
     Active Substance: SILDENAFIL CITRATE
     Indication: PULMONARY HYPERTENSION
     Dosage: 20 MG, 3X/DAY
     Route: 048
  4. POTASSIUM CHLORIDE. [Concomitant]
     Active Substance: POTASSIUM CHLORIDE
     Dosage: 10 MEQ, 3X/DAY
  5. FERROUS SULFATE. [Concomitant]
     Active Substance: FERROUS SULFATE
     Dosage: UNK, 1X/DAY
  6. METOLAZONE. [Concomitant]
     Active Substance: METOLAZONE
     Dosage: 2.5 MG, AS NEEDED
  7. BUDESONIDE. [Concomitant]
     Active Substance: BUDESONIDE
     Dosage: 4.5 MG, UNK
  8. CO ENZYME Q10 [Concomitant]
     Dosage: 100 MG, 1X/DAY
  9. FERROUS SULFIDE [Concomitant]
     Active Substance: FERROUS SULFIDE
     Dosage: 2 DF, 1X/DAY
  10. POTASSIUM CHLORIDE. [Concomitant]
     Active Substance: POTASSIUM CHLORIDE
     Dosage: 20 MEQ, 3X/DAY
     Route: 048
  11. ISOSORBIDE MONONITRATE. [Concomitant]
     Active Substance: ISOSORBIDE MONONITRATE
     Dosage: 30 MG, 1X/DAY
  12. SYMBICORT [Concomitant]
     Active Substance: BUDESONIDE\FORMOTEROL FUMARATE DIHYDRATE
     Dosage: 2 PUFFS, TWICE A DAY
  13. ZAROXOLYN [Concomitant]
     Active Substance: METOLAZONE
     Dosage: 2.5 MG, 2X/DAY
  14. WARFARIN [Concomitant]
     Active Substance: WARFARIN
     Dosage: THE REST OF THE WEEKS HE TAKES 1 1/2 DAILY (7.5 MG DAILY)
  15. SPIRIVA [Concomitant]
     Active Substance: TIOTROPIUM BROMIDE MONOHYDRATE
     Dosage: 18 UG, 1X/DAY
  16. COLCHICINE. [Concomitant]
     Active Substance: COLCHICINE
     Dosage: 0.6 MG, AS NEEDED
     Route: 048
  17. FLUNISOLIDE. [Concomitant]
     Active Substance: FLUNISOLIDE
     Dosage: 250MCG/ACTUATION AS NEEDED
     Route: 055
  18. TERAZOSIN [Concomitant]
     Active Substance: TERAZOSIN\TERAZOSIN HYDROCHLORIDE
     Dosage: 2 MG, 2X/DAY
  19. WARFARIN [Concomitant]
     Active Substance: WARFARIN
     Dosage: 5 MG, ON MONDAY^S HE TAKES 1
  20. PROVENTIL HFA [Concomitant]
     Active Substance: ALBUTEROL SULFATE
     Dosage: UNK, AS NEEDED
  21. LOSARTAN. [Concomitant]
     Active Substance: LOSARTAN
     Dosage: 50 MG, 1X/DAY
  22. OMEPRAZOLE. [Concomitant]
     Active Substance: OMEPRAZOLE
     Dosage: 20 MG, DAILY
  23. ALBUTEROL. [Concomitant]
     Active Substance: ALBUTEROL
     Dosage: 90MCG, 2 INHALATIONS, AS NEEDED
     Route: 055
  24. BUMETANIDE. [Concomitant]
     Active Substance: BUMETANIDE
     Dosage: 1 MG, 3X/DAY
     Route: 048
  25. COUAMDIN [Concomitant]
     Dosage: AS DIRECTED
     Route: 048
  26. NASONEX [Concomitant]
     Active Substance: MOMETASONE FUROATE
     Dosage: UNK, AS NEEDED
  27. ULORIC [Concomitant]
     Active Substance: FEBUXOSTAT
     Dosage: 80 MG, 1X/DAY

REACTIONS (6)
  - Acetabulum fracture [Recovering/Resolving]
  - Ventricular hypokinesia [Unknown]
  - Ecchymosis [Unknown]
  - Fall [Unknown]
  - Drug ineffective for unapproved indication [Unknown]
  - Fractured ischium [Recovering/Resolving]

NARRATIVE: CASE EVENT DATE: 20151229
